FAERS Safety Report 6994712-3 (Version None)
Quarter: 2010Q3

REPORT INFORMATION
  Report Type: 
  Country: None (occurrence: None)
  Receive Date: 20100917
  Receipt Date: 20090227
  Transmission Date: 20110219
  Serious: Yes (Hospitalization, Other)
  Sender: FDA-Public Use
  Company Number: HQWYE190816JUL04

PATIENT
  Sex: Female

DRUGS (5)
  1. PREMPRO [Suspect]
  2. MEDROXYPROGESTERONE ACETATE [Suspect]
  3. MEDROXYPROGESTERONE ACETATE [Suspect]
     Indication: HORMONE REPLACEMENT THERAPY
  4. MEDROXYPROGESTERONE ACETATE [Suspect]
     Indication: MENOPAUSE
  5. PREMARIN [Suspect]

REACTIONS (1)
  - BREAST CANCER [None]
